FAERS Safety Report 9954807 (Version 1)
Quarter: 2014Q1

REPORT INFORMATION
  Report Type: Spontaneous
  Country: CL (occurrence: CL)
  Receive Date: 20140304
  Receipt Date: 20140304
  Transmission Date: 20141002
  Serious: Yes (Other)
  Sender: FDA-Public Use
  Company Number: CL-PFIZER INC-2014061335

PATIENT
  Age: 72 Year
  Sex: Female

DRUGS (2)
  1. XALATAN [Suspect]
     Indication: GLAUCOMA
     Dosage: 1 DROP, 1X/DAY
     Route: 047
     Dates: start: 2002, end: 2013
  2. ARTESOL [Concomitant]

REACTIONS (4)
  - Cataract [Unknown]
  - Urinary incontinence [Unknown]
  - Venous occlusion [Not Recovered/Not Resolved]
  - Back pain [Not Recovered/Not Resolved]
